FAERS Safety Report 7407112-9 (Version None)
Quarter: 2011Q2

REPORT INFORMATION
  Report Type: 
  Country: None (occurrence: None)
  Receive Date: 20110411
  Receipt Date: 20110331
  Transmission Date: 20111010
  Serious: Yes (Other)
  Sender: FDA-Public Use
  Company Number: KR-BAXTER-2011BH008806

PATIENT
  Age: 67 Year
  Sex: Male

DRUGS (5)
  1. METRONIDAZOLE IN PLASTIC CONTAINER [Suspect]
  2. METRONIDAZOLE IN PLASTIC CONTAINER [Suspect]
     Indication: LIVER ABSCESS
     Route: 051
  3. METRONIDAZOLE [Suspect]
     Indication: LIVER ABSCESS
     Route: 048
  4. CEFOTAXIME [Suspect]
     Indication: LIVER ABSCESS
     Route: 051
  5. CEFIXIME [Suspect]
     Indication: LIVER ABSCESS
     Route: 065

REACTIONS (6)
  - HYPERHIDROSIS [None]
  - DYSPNOEA [None]
  - BLOOD PRESSURE FLUCTUATION [None]
  - DYSARTHRIA [None]
  - NEUROTOXICITY [None]
  - CEREBELLAR SYNDROME [None]
